FAERS Safety Report 6055329-0 (Version None)
Quarter: 2009Q1

REPORT INFORMATION
  Report Type: 
  Country: None (occurrence: None)
  Receive Date: 20090128
  Receipt Date: 20090121
  Transmission Date: 20090719
  Serious: Yes (Hospitalization)
  Sender: FDA-Public Use
  Company Number: SE-BAYER-200911915GPV

PATIENT
  Age: 74 Year
  Sex: Male

DRUGS (1)
  1. NEXAVAR [Suspect]
     Indication: RENAL CELL CARCINOMA
     Dosage: UNIT DOSE: 200 MG
     Route: 048
     Dates: start: 20080821, end: 20080827

REACTIONS (3)
  - CONNECTIVE TISSUE DISORDER [None]
  - MUSCULOSKELETAL DISORDER [None]
  - NERVOUS SYSTEM DISORDER [None]
